APPROVED DRUG PRODUCT: ZYFLO CR
Active Ingredient: ZILEUTON
Strength: 600MG **Federal Register determination that product was not discontinued or withdrawn for safety or effectiveness reasons**
Dosage Form/Route: TABLET, EXTENDED RELEASE;ORAL
Application: N022052 | Product #001
Applicant: CHIESI USA INC
Approved: May 30, 2007 | RLD: Yes | RS: No | Type: DISCN